FAERS Safety Report 10430310 (Version 1)
Quarter: 2014Q3

REPORT INFORMATION
  Report Type: Spontaneous
  Country: US (occurrence: US)
  Receive Date: 20140904
  Receipt Date: 20140904
  Transmission Date: 20150326
  Serious: No
  Sender: FDA-Public Use
  Company Number: US-SA-CART-1000095

PATIENT
  Sex: Male

DRUGS (1)
  1. AUTOLOGOUS CHONDROCYTES [Suspect]
     Active Substance: AUTOLOGOUS CULTURED CHONDROCYTES
     Indication: CARTILAGE INJURY
     Dosage: UNK
     Route: 014
     Dates: start: 201305, end: 201305

REACTIONS (1)
  - Post procedural complication [Unknown]

NARRATIVE: CASE EVENT DATE: 2013
